FAERS Safety Report 20082173 (Version 1)
Quarter: 2021Q4

REPORT INFORMATION
  Report Type: Report from Study
  Country: EG (occurrence: EG)
  Receive Date: 20211117
  Receipt Date: 20211117
  Transmission Date: 20220303
  Serious: Yes (Hospitalization, Other)
  Sender: FDA-Public Use
  Company Number: EG-NOVARTISPH-NVSC2021EG258369

PATIENT
  Age: 59 Year
  Sex: Female

DRUGS (1)
  1. ENTRESTO [Suspect]
     Active Substance: SACUBITRIL\VALSARTAN
     Indication: Cardiac failure
     Dosage: 100 MG, BID
     Route: 048
     Dates: start: 202012

REACTIONS (21)
  - Dehydration [Recovering/Resolving]
  - Haematocrit decreased [Recovering/Resolving]
  - Haemoglobin decreased [Recovering/Resolving]
  - Blood potassium decreased [Recovering/Resolving]
  - Blood calcium decreased [Recovering/Resolving]
  - Blood magnesium decreased [Recovering/Resolving]
  - Blood sodium decreased [Recovering/Resolving]
  - Blood uric acid decreased [Recovering/Resolving]
  - Ejection fraction decreased [Unknown]
  - Decreased appetite [Not Recovered/Not Resolved]
  - Weight decreased [Not Recovered/Not Resolved]
  - Blood pressure abnormal [Not Recovered/Not Resolved]
  - Heart rate increased [Not Recovered/Not Resolved]
  - Dyspnoea [Recovered/Resolved]
  - Gait disturbance [Recovered/Resolved]
  - Altered state of consciousness [Recovered/Resolved]
  - Vomiting [Recovered/Resolved]
  - Dyspepsia [Not Recovered/Not Resolved]
  - Constipation [Not Recovered/Not Resolved]
  - Pulmonary oedema [Recovered/Resolved]
  - Insomnia [Not Recovered/Not Resolved]

NARRATIVE: CASE EVENT DATE: 20201201
